FAERS Safety Report 7476542-1 (Version None)
Quarter: 2011Q2

REPORT INFORMATION
  Report Type: 
  Country: None (occurrence: None)
  Receive Date: 20110512
  Receipt Date: 20110504
  Transmission Date: 20111010
  Serious: Yes (Hospitalization, Other)
  Sender: FDA-Public Use
  Company Number: PHHY2010CA56380

PATIENT
  Sex: Female

DRUGS (1)
  1. SANDOSTATIN LAR [Suspect]
     Indication: PITUITARY TUMOUR
     Dosage: 30 MG, QMO
     Route: 030
     Dates: start: 20000501

REACTIONS (6)
  - INJECTION SITE SWELLING [None]
  - ABDOMINAL PAIN [None]
  - CHOLELITHIASIS [None]
  - INJECTION SITE HAEMATOMA [None]
  - INJECTION SITE HAEMORRHAGE [None]
  - MUSCULOSKELETAL PAIN [None]
